FAERS Safety Report 8746289 (Version 2)
Quarter: 2013Q2

REPORT INFORMATION
  Report Type: Spontaneous
  Country: US (occurrence: US)
  Receive Date: 20120827
  Receipt Date: 20130528
  Transmission Date: 20140414
  Serious: Yes (Disabling)
  Sender: FDA-Public Use
  Company Number: US-JNJFOC-20100205777

PATIENT
  Sex: Female

DRUGS (2)
  1. TYLENOL ARTHRITIS PAIN ER [Suspect]
     Route: 048
  2. TYLENOL ARTHRITIS PAIN ER [Suspect]
     Indication: PRODUCT USED FOR UNKNOWN INDICATION
     Route: 048
     Dates: start: 200911

REACTIONS (8)
  - Disability [Unknown]
  - Injury [Unknown]
  - Product quality issue [Unknown]
  - Malaise [Unknown]
  - Discomfort [Unknown]
  - Gait disturbance [Unknown]
  - Gastritis [Recovering/Resolving]
  - Nausea [None]
